FAERS Safety Report 9587531 (Version 1)
Quarter: 2013Q4

REPORT INFORMATION
  Report Type: Spontaneous
  Country: US (occurrence: US)
  Receive Date: 20131003
  Receipt Date: 20131003
  Transmission Date: 20140711
  Serious: No
  Sender: FDA-Public Use
  Company Number: US-PFIZER INC-2013281648

PATIENT
  Age: 76 Year
  Sex: Male
  Weight: 90.7 kg

DRUGS (4)
  1. VIAGRA [Suspect]
     Indication: ERECTILE DYSFUNCTION
     Dosage: 50 MG, AS NEEDED
     Dates: start: 2013
  2. LEVODOPA-CARBIDOPA [Concomitant]
     Indication: RESTLESS LEGS SYNDROME
     Dosage: 25 MG CARBIDOPA/100 MG LEVODOPA, AS NEEDED
  3. PRAMIPEXOLE [Concomitant]
     Indication: NERVOUS SYSTEM DISORDER
     Dosage: 0.05 MG DAILY
  4. CLONAZEPAM [Concomitant]
     Indication: SLEEP DISORDER
     Dosage: 2 MG, DAILY

REACTIONS (1)
  - Drug ineffective [Unknown]
